FAERS Safety Report 12606463 (Version 1)
Quarter: 2016Q3

REPORT INFORMATION
  Report Type: Spontaneous
  Country: US (occurrence: None)
  Receive Date: 20160728
  Receipt Date: 20160728
  Transmission Date: 20161109
  Serious: Yes (Other)
  Sender: FDA-Public Use
  Company Number: None

PATIENT
  Age: 64 Year
  Sex: Female
  Weight: 90.72 kg

DRUGS (30)
  1. RAW PANCREAS [Concomitant]
  2. FISH OIL [Concomitant]
     Active Substance: FISH OIL
  3. LUTEIN [Concomitant]
     Active Substance: LUTEIN
  4. LOSARTAN POT. [Concomitant]
  5. STOMACH SOOTHING COMPLEX [Concomitant]
  6. CARVEDILOL. [Concomitant]
     Active Substance: CARVEDILOL
  7. THYROID (NON PRESCRIPTION)-RAW [Concomitant]
  8. SELENIUM [Concomitant]
     Active Substance: SELENIUM
  9. CONCENTRACE MINERALS [Concomitant]
  10. ASA [Concomitant]
     Active Substance: ASPIRIN
  11. VITAMIN D [Concomitant]
     Active Substance: CHOLECALCIFEROL
  12. BILBERRY [Concomitant]
     Active Substance: BILBERRY
  13. SAW PALMETTO [Concomitant]
     Active Substance: SAW PALMETTO
  14. PRIMAL DEFENSE PROBIOTIC [Concomitant]
  15. PHOSPHATIDYL CHOLINE [Concomitant]
     Active Substance: LECITHIN
  16. EPO [Concomitant]
     Active Substance: ERYTHROPOIETIN
  17. LYSINE [Concomitant]
     Active Substance: LYSINE
  18. LACTOSE ENZYME [Concomitant]
  19. ELDERBERRY [Concomitant]
     Active Substance: HERBALS
  20. ION BOOSTER (ALKALIZING AGENT) [Concomitant]
  21. TESTOSTERONE CREAM [Concomitant]
     Active Substance: TESTOSTERONE
  22. KELP [Concomitant]
     Active Substance: KELP
  23. VITAMIN B COMPLEX [Concomitant]
     Active Substance: CYANOCOBALAMIN\DEXPANTHENOL\NIACINAMIDE\PYRIDOXINE HYDROCHLORIDE\RIBOFLAVIN 5^-PHOSPHATE SODIUM\THIAMINE HYDROCHLORIDE\VITAMIN B COMPLEX
  24. COLLATRIM (LIQUID COLLAGEN) [Concomitant]
  25. LISINOPRIL 10MG (GENERIC FOR PRIVINIL 10MG) MFG. SOLCO F2HIKJ- CRC-** NDC 43547-0353-11 [Suspect]
     Active Substance: LISINOPRIL
     Indication: HYPERTENSION
     Dosage: { 360 TABS 40MG QD P.O.
     Route: 048
     Dates: start: 201405, end: 20160711
  26. NUTRIFERON [Concomitant]
  27. GABA [Concomitant]
     Active Substance: .GAMMA.-AMINOBUTYRIC ACID
  28. MORINGA COMPLEX (SUPER MIX) [Concomitant]
  29. TRAZODONE [Concomitant]
     Active Substance: TRAZODONE HYDROCHLORIDE
  30. PRE + PROBIOTIC [Concomitant]

REACTIONS (8)
  - Vomiting [None]
  - Cough [None]
  - Activities of daily living impaired [None]
  - Anal incontinence [None]
  - Fatigue [None]
  - Gastrooesophageal reflux disease [None]
  - Depression [None]
  - Stress urinary incontinence [None]
